FAERS Safety Report 5427636-3 (Version None)
Quarter: 2007Q3

REPORT INFORMATION
  Report Type: 
  Country: None (occurrence: None)
  Receive Date: 20070823
  Receipt Date: 20070807
  Transmission Date: 20080115
  Serious: Yes (Life-Threatening, Hospitalization)
  Sender: FDA-Public Use
  Company Number: DSA_29221_2007

PATIENT
  Sex: Female

DRUGS (3)
  1. LORAZEPAM [Suspect]
     Dosage: (10 MG 1X ORAL), (4 MG QD ORAL)
     Route: 048
     Dates: start: 20070108, end: 20070108
  2. INSULIN [Suspect]
     Dosage: (1200 IU 1X SUBCUTANEOUS)
     Route: 058
     Dates: start: 20070108, end: 20070108
  3. ISOPHANE INSULIN [Suspect]
     Dosage: (300 IU 1X SUBCUTANEOUS)
     Route: 058
     Dates: start: 20070108, end: 20070108

REACTIONS (6)
  - BLOOD CALCIUM DECREASED [None]
  - HAEMOGLOBIN DECREASED [None]
  - HYPOGLYCAEMIA [None]
  - MULTIPLE DRUG OVERDOSE INTENTIONAL [None]
  - RED BLOOD CELL COUNT DECREASED [None]
  - SUICIDE ATTEMPT [None]
